FAERS Safety Report 6686442-2 (Version None)
Quarter: 2010Q2

REPORT INFORMATION
  Report Type: 
  Country: None (occurrence: None)
  Receive Date: 20100419
  Receipt Date: 20100414
  Transmission Date: 20101027
  Serious: Yes (Life-Threatening, Hospitalization)
  Sender: FDA-Public Use
  Company Number: B0647334A

PATIENT
  Age: 30 Year
  Sex: Male

DRUGS (3)
  1. ZINNAT [Suspect]
     Indication: NASOPHARYNGITIS
     Dosage: 250MG TWICE PER DAY
     Route: 048
     Dates: start: 20091001, end: 20091008
  2. SUDAFED 12 HOUR [Suspect]
     Indication: NASOPHARYNGITIS
     Dosage: 60MG UNKNOWN
     Route: 048
     Dates: start: 20091001, end: 20091008
  3. TEGRETOL [Suspect]
     Indication: DRUG USE FOR UNKNOWN INDICATION
     Dosage: 200MG TWICE PER DAY
     Route: 048
     Dates: start: 20091001, end: 20091008

REACTIONS (20)
  - BLISTER [None]
  - CHILLS [None]
  - CONJUNCTIVAL EROSION [None]
  - DRY EYE [None]
  - DYSPHAGIA [None]
  - EYELID MARGIN CRUSTING [None]
  - GENITAL EROSION [None]
  - HEPATOCELLULAR INJURY [None]
  - HYPONATRAEMIA [None]
  - MOUTH ULCERATION [None]
  - MUCOSAL EROSION [None]
  - PYREXIA [None]
  - RASH MACULAR [None]
  - RASH MACULOVESICULAR [None]
  - SKIN DISORDER [None]
  - SKIN EROSION [None]
  - SKIN EXFOLIATION [None]
  - STAPHYLOCOCCAL SEPSIS [None]
  - STEVENS-JOHNSON SYNDROME [None]
  - TOXIC EPIDERMAL NECROLYSIS [None]
